FAERS Safety Report 11685693 (Version 1)
Quarter: 2015Q4

REPORT INFORMATION
  Report Type: Spontaneous
  Country: US (occurrence: US)
  Receive Date: 20151030
  Receipt Date: 20151030
  Transmission Date: 20160304
  Serious: No
  Sender: FDA-Public Use
  Company Number: US-TEVA-603959USA

PATIENT
  Sex: Male

DRUGS (1)
  1. GRANIX [Suspect]
     Active Substance: TBO-FILGRASTIM
     Indication: PRODUCT USED FOR UNKNOWN INDICATION
     Dosage: 480 MCG / 0.8 ML
     Route: 042

REACTIONS (4)
  - Drug effect delayed [Unknown]
  - Pain [Unknown]
  - Unevaluable event [Unknown]
  - Body temperature decreased [Unknown]
